FAERS Safety Report 4461323-3 (Version None)
Quarter: 2004Q3

REPORT INFORMATION
  Report Type: 
  Country: None (occurrence: None)
  Receive Date: 20040928
  Receipt Date: 20040917
  Transmission Date: 20050211
  Serious: Yes (Life-Threatening, Hospitalization)
  Sender: FDA-Public Use
  Company Number: FR-JNJFOC-20040905809

PATIENT
  Age: 59 Year
  Sex: Female

DRUGS (6)
  1. HALDOL [Suspect]
     Route: 049
  2. NOZINAN [Suspect]
     Route: 049
  3. NOZINAN [Suspect]
     Route: 049
  4. CLOPIXOL [Suspect]
     Route: 030
  5. ARTANE [Concomitant]
  6. GARDENAL [Concomitant]

REACTIONS (8)
  - BLOOD CREATINE PHOSPHOKINASE INCREASED [None]
  - CONVULSION [None]
  - DERMATITIS EXFOLIATIVE [None]
  - HYPERTHERMIA [None]
  - MUSCLE NECROSIS [None]
  - PYREXIA [None]
  - RASH [None]
  - RASH ERYTHEMATOUS [None]
